FAERS Safety Report 6645624-6 (Version None)
Quarter: 2010Q1

REPORT INFORMATION
  Report Type: 
  Country: None (occurrence: None)
  Receive Date: 20100323
  Receipt Date: 20100318
  Transmission Date: 20100710
  Serious: Yes (Other)
  Sender: FDA-Public Use
  Company Number: FR-WYE-G05777810

PATIENT
  Sex: Male

DRUGS (1)
  1. ADVIL LIQUI-GELS [Suspect]
     Indication: MIGRAINE
     Dosage: 8 TO 10 TABLETS PER DAY ON DEMAND. DOSE UNKNOWN.
     Route: 048
     Dates: start: 20090801, end: 20100126

REACTIONS (3)
  - DUODENITIS [None]
  - EROSIVE OESOPHAGITIS [None]
  - GASTRIC ULCER [None]
